FAERS Safety Report 6772585-1 (Version None)
Quarter: 2010Q2

REPORT INFORMATION
  Report Type: 
  Country: None (occurrence: None)
  Receive Date: 20100616
  Receipt Date: 20100420
  Transmission Date: 20101027
  Serious: No
  Sender: FDA-Public Use
  Company Number: US-ASTRAZENECA-2010SE06616

PATIENT
  Age: 5 Year
  Sex: Female
  Weight: 19.5 kg

DRUGS (4)
  1. PULMICORT FLEXHALER [Suspect]
     Indication: ASTHMA
     Dosage: 180 MCG 2 PUFF, DAILY
     Route: 055
     Dates: start: 20100125, end: 20100205
  2. PULMICORT FLEXHALER [Suspect]
     Dosage: 180 MCG 1 PUFF, DAILY
     Route: 055
     Dates: start: 20100205, end: 20100209
  3. AMOXICILLIN [Concomitant]
  4. ALBUTEROL [Concomitant]
     Indication: ASTHMA
     Dosage: UP TO THREE TIMES A DAY
     Dates: start: 20100125, end: 20100205

REACTIONS (4)
  - INSOMNIA [None]
  - MOOD SWINGS [None]
  - OFF LABEL USE [None]
  - POLLAKIURIA [None]
